FAERS Safety Report 23159861 (Version 2)
Quarter: 2023Q4

REPORT INFORMATION
  Report Type: Spontaneous
  Country: US (occurrence: US)
  Receive Date: 20231108
  Receipt Date: 20231201
  Transmission Date: 20240110
  Serious: Yes (Hospitalization)
  Sender: FDA-Public Use
  Company Number: US-Calliditas-2023CAL01385

PATIENT
  Age: 48 Year
  Sex: Male

DRUGS (2)
  1. TARPEYO [Suspect]
     Active Substance: BUDESONIDE
     Indication: IgA nephropathy
     Dosage: 16 MG (4 MG CAPSULES) ONCE DAILY
     Route: 048
     Dates: start: 202210
  2. VALSARTAN [Concomitant]
     Active Substance: VALSARTAN

REACTIONS (4)
  - Diverticulitis intestinal perforated [Unknown]
  - Proteinuria [Unknown]
  - Blood testosterone decreased [Unknown]
  - Fatigue [Recovered/Resolved]
